FAERS Safety Report 7790989-5 (Version None)
Quarter: 2011Q4

REPORT INFORMATION
  Report Type: 
  Country: None (occurrence: None)
  Receive Date: 20111002
  Receipt Date: 20110926
  Transmission Date: 20120403
  Serious: Yes (Life-Threatening)
  Sender: FDA-Public Use
  Company Number: PHHY2011TR85127

PATIENT

DRUGS (1)
  1. ONBREZ [Suspect]

REACTIONS (1)
  - MYOCARDIAL INFARCTION [None]
